FAERS Safety Report 9471909 (Version 1)
Quarter: 2013Q3

REPORT INFORMATION
  Report Type: Spontaneous
  Country: DE (occurrence: DE)
  Receive Date: 20130823
  Receipt Date: 20130823
  Transmission Date: 20140515
  Serious: Yes (Hospitalization, Other)
  Sender: FDA-Public Use
  Company Number: DE-ASTRAZENECA-2013SE63850

PATIENT
  Age: 0 Day
  Sex: Male
  Weight: 3.3 kg

DRUGS (2)
  1. QUETIAPINE [Suspect]
     Indication: DEPRESSION
     Route: 064
     Dates: start: 20090101, end: 20090919
  2. CITALOPRAM [Suspect]
     Indication: DEPRESSION
     Route: 064
     Dates: start: 20090101, end: 20090919

REACTIONS (2)
  - Agitation neonatal [Recovering/Resolving]
  - Neonatal respiratory distress syndrome [Recovered/Resolved]
